FAERS Safety Report 8534059-7 (Version None)
Quarter: 2012Q2

REPORT INFORMATION
  Report Type: 
  Country: None (occurrence: None)
  Receive Date: 20120412
  Receipt Date: 20081205
  Transmission Date: 20120825
  Serious: Yes (Other)
  Sender: FDA-Public Use
  Company Number: PHEH2008US10863

PATIENT
  Sex: Male

DRUGS (1)
  1. CLOZARIL [Suspect]
     Indication: SCHIZOAFFECTIVE DISORDER
     Dosage: 700 MG, QHS, ORAL
     Route: 048
     Dates: start: 20060101

REACTIONS (3)
  - CONFUSIONAL STATE [None]
  - DIZZINESS [None]
  - TREMOR [None]
